FAERS Safety Report 24089359 (Version 1)
Quarter: 2024Q3

REPORT INFORMATION
  Report Type: Spontaneous
  Country: FR (occurrence: FR)
  Receive Date: 20240715
  Receipt Date: 20240715
  Transmission Date: 20241016
  Serious: Yes (Hospitalization)
  Sender: TEVA
  Company Number: None

PATIENT
  Age: 97 Year
  Sex: Male
  Weight: 65 kg

DRUGS (2)
  1. EVEROLIMUS [Suspect]
     Active Substance: EVEROLIMUS
     Indication: Neuroendocrine tumour of the lung
     Dosage: 5 MG/D,?1FP
     Route: 048
     Dates: start: 20231107, end: 20240326
  2. LANREOTIDE ACETATE [Concomitant]
     Active Substance: LANREOTIDE ACETATE
     Indication: Neuroendocrine tumour of the lung
     Dosage: 1 INJECTION ONCE PER 2 WEEKS,?SOMATULINE L.P. PROLONGED RELEASE INJECTION SOLUTION IN PRE-FILLED ...
     Route: 058
     Dates: start: 20210401

REACTIONS (2)
  - Respiratory distress [Recovering/Resolving]
  - Interstitial lung disease [Recovering/Resolving]

NARRATIVE: CASE EVENT DATE: 20230326
